FAERS Safety Report 23805027 (Version 1)
Quarter: 2024Q2

REPORT INFORMATION
  Report Type: Spontaneous
  Country: BA (occurrence: BA)
  Receive Date: 20240502
  Receipt Date: 20240502
  Transmission Date: 20240716
  Serious: Yes (Other)
  Sender: FDA-Public Use
  Company Number: BA-002147023-NVSC2024BA089184

PATIENT
  Sex: Female

DRUGS (8)
  1. RIBOCICLIB [Suspect]
     Active Substance: RIBOCICLIB
     Indication: Breast cancer metastatic
     Dosage: 200 MG, TID (1ST CYCLE) (FOR 21 DAYS, AFTER THAT PAUSE FOR 7 DAYS)
     Route: 065
     Dates: start: 20230512
  2. RIBOCICLIB [Suspect]
     Active Substance: RIBOCICLIB
     Dosage: UNK (12TH CYCLE)
     Route: 065
  3. LETROZOLE [Suspect]
     Active Substance: LETROZOLE
     Indication: Breast cancer metastatic
     Dosage: UNK
     Route: 065
     Dates: start: 202305
  4. LETROZOLE [Suspect]
     Active Substance: LETROZOLE
     Dosage: UNK (12TH CYCLE)
     Route: 065
  5. ZOMETA [Concomitant]
     Active Substance: ZOLEDRONIC ACID
     Indication: Product used for unknown indication
     Dosage: UNK (AMPULES)
     Route: 065
  6. ZOMETA [Concomitant]
     Active Substance: ZOLEDRONIC ACID
     Dosage: UNK (12TH CYCLE)
     Route: 065
  7. LEUPROLIDE ACETATE [Concomitant]
     Active Substance: ISOPROPYL ALCOHOL\LEUPROLIDE ACETATE
     Indication: Product used for unknown indication
     Dosage: UNK
     Route: 065
  8. LEUPROLIDE ACETATE [Concomitant]
     Active Substance: ISOPROPYL ALCOHOL\LEUPROLIDE ACETATE
     Dosage: UNK (12TH CYCLE)
     Route: 065

REACTIONS (6)
  - Hepatic cyst [Unknown]
  - Breast cancer [Unknown]
  - Metastases to pleura [Unknown]
  - Thoracic vertebral fracture [Unknown]
  - Neutropenia [Unknown]
  - Osteolysis [Unknown]

NARRATIVE: CASE EVENT DATE: 20230519
